FAERS Safety Report 24850725 (Version 1)
Quarter: 2025Q1

REPORT INFORMATION
  Report Type: Spontaneous
  Country: CH (occurrence: CH)
  Receive Date: 20250116
  Receipt Date: 20250116
  Transmission Date: 20250408
  Serious: Yes (Hospitalization)
  Sender: PFIZER
  Company Number: None

PATIENT
  Age: 32 Year
  Sex: Male

DRUGS (4)
  1. PANTOZOL [Suspect]
     Active Substance: PANTOPRAZOLE SODIUM
     Route: 048
     Dates: start: 20241219, end: 20241219
  2. CARICOL GASTRO [Concomitant]
     Route: 048
     Dates: start: 20241219, end: 20241219
  3. HERBALS [Concomitant]
     Active Substance: HERBALS
     Dosage: 3 DOSAGE FORM, QD
     Route: 048
  4. HERBALS\HOPS\VALERIAN [Concomitant]
     Active Substance: HERBALS\HOPS\VALERIAN
     Dosage: 1 DOSAGE FORM, QD
     Route: 048

REACTIONS (3)
  - Presyncope [Recovering/Resolving]
  - Rash [Recovering/Resolving]
  - Pruritus [Recovering/Resolving]

NARRATIVE: CASE EVENT DATE: 20241219
